FAERS Safety Report 8377805-8 (Version None)
Quarter: 2012Q2

REPORT INFORMATION
  Report Type: 
  Country: None (occurrence: None)
  Receive Date: 20120521
  Receipt Date: 20120505
  Transmission Date: 20120825
  Serious: Yes (Other)
  Sender: FDA-Public Use
  Company Number: 2012AP001354

PATIENT
  Age: 63 Year
  Sex: Male

DRUGS (10)
  1. CEFTAZIDIME [Concomitant]
  2. CEFEPIME [Concomitant]
  3. CIPROFLOXACIN [Suspect]
     Indication: BRONCHITIS
     Dosage: 500 MG;BID ; 500 MG;BID
     Dates: start: 20110401, end: 20110526
  4. CIPROFLOXACIN [Suspect]
     Indication: BRONCHIECTASIS
     Dosage: 500 MG;BID ; 500 MG;BID
     Dates: start: 20110401, end: 20110526
  5. CIPROFLOXACIN [Suspect]
     Indication: BRONCHITIS
     Dosage: 500 MG;BID ; 500 MG;BID
     Dates: start: 20100901
  6. CIPROFLOXACIN [Suspect]
     Indication: BRONCHIECTASIS
     Dosage: 500 MG;BID ; 500 MG;BID
     Dates: start: 20100901
  7. CIPROFLOXACIN [Suspect]
     Indication: BRONCHITIS
     Dosage: 500 MG;BID ; 500 MG;BID
     Dates: start: 20110301
  8. CIPROFLOXACIN [Suspect]
     Indication: BRONCHIECTASIS
     Dosage: 500 MG;BID ; 500 MG;BID
     Dates: start: 20110301
  9. CIPROFLOXACIN [Suspect]
     Indication: BRONCHITIS
     Dosage: 500 MG;BID ; 500 MG;BID
     Dates: start: 20100101
  10. CIPROFLOXACIN [Suspect]
     Indication: BRONCHIECTASIS
     Dosage: 500 MG;BID ; 500 MG;BID
     Dates: start: 20100101

REACTIONS (8)
  - MUSCULAR WEAKNESS [None]
  - MUSCULOSKELETAL PAIN [None]
  - RENAL FAILURE ACUTE [None]
  - FATIGUE [None]
  - ARTHRALGIA [None]
  - PAIN IN EXTREMITY [None]
  - MYALGIA [None]
  - BACK PAIN [None]
